APPROVED DRUG PRODUCT: ERLOTINIB HYDROCHLORIDE
Active Ingredient: ERLOTINIB HYDROCHLORIDE
Strength: EQ 25MG BASE
Dosage Form/Route: TABLET;ORAL
Application: A091059 | Product #001 | TE Code: AB
Applicant: TEVA PHARMACEUTICALS USA INC
Approved: Nov 9, 2020 | RLD: No | RS: No | Type: RX